FAERS Safety Report 10017906 (Version 1)
Quarter: 2014Q1

REPORT INFORMATION
  Report Type: Spontaneous
  Country: FR (occurrence: FR)
  Receive Date: 20140318
  Receipt Date: 20140318
  Transmission Date: 20141002
  Serious: Yes (Hospitalization)
  Sender: FDA-Public Use
  Company Number: FR-ASTRAZENECA-2014SE18246

PATIENT
  Age: 85 Year
  Sex: Male

DRUGS (5)
  1. CASODEX [Suspect]
     Indication: PROSTATE CANCER
     Route: 048
     Dates: start: 20130917, end: 201312
  2. FIRMAGON [Suspect]
     Indication: PROSTATE CANCER
     Route: 058
     Dates: start: 201207, end: 20130702
  3. XGEVA [Suspect]
     Indication: PROSTATE CANCER
     Route: 058
     Dates: start: 20130930, end: 201312
  4. VAXIGRIP [Suspect]
     Indication: INFLUENZA IMMUNISATION
     Route: 051
     Dates: start: 201310, end: 201310
  5. ELIGARD [Suspect]
     Indication: PROSTATE CANCER
     Route: 058
     Dates: start: 20130917

REACTIONS (9)
  - Renal failure acute [Unknown]
  - Aphthous stomatitis [Unknown]
  - Malnutrition [Unknown]
  - Dehydration [Unknown]
  - Pemphigoid [Unknown]
  - Scab [Unknown]
  - Anaemia [Unknown]
  - Pruritus [Unknown]
  - Rash maculo-papular [Unknown]
